FAERS Safety Report 6522202-0 (Version None)
Quarter: 2009Q4

REPORT INFORMATION
  Report Type: 
  Country: None (occurrence: None)
  Receive Date: 20091230
  Receipt Date: 20091217
  Transmission Date: 20100525
  Serious: Yes (Other)
  Sender: FDA-Public Use
  Company Number: CO-JNJFOC-20091207305

PATIENT
  Age: 48 Year
  Sex: Female

DRUGS (5)
  1. REMICADE [Suspect]
     Dosage: SECOND INFUSION
     Route: 042
  2. REMICADE [Suspect]
     Indication: RHEUMATOID ARTHRITIS
     Dosage: INITIAL INFUSION
     Route: 042
  3. METHOTREXATE [Concomitant]
  4. PREDNISONE [Concomitant]
  5. NAPROXEN [Concomitant]

REACTIONS (11)
  - ANXIETY [None]
  - BACK PAIN [None]
  - HYPERHIDROSIS [None]
  - HYPERTENSION [None]
  - INFUSION RELATED REACTION [None]
  - NAUSEA [None]
  - PELVIC PAIN [None]
  - SURGERY [None]
  - TACHYCARDIA [None]
  - TREMOR [None]
  - VOMITING [None]
